FAERS Safety Report 26146426 (Version 1)
Quarter: 2025Q4

REPORT INFORMATION
  Report Type: Report from Study
  Country: AE (occurrence: AE)
  Receive Date: 20251211
  Receipt Date: 20251211
  Transmission Date: 20260117
  Serious: Yes (Other)
  Sender: ROCHE
  Company Number: AE-ROCHE-10000314357

PATIENT
  Age: 39 Year
  Sex: Female

DRUGS (1)
  1. GAZYVA [Suspect]
     Active Substance: OBINUTUZUMAB
     Indication: Product used for unknown indication

REACTIONS (6)
  - Lymphocytosis [Unknown]
  - Computerised tomogram abnormal [Unknown]
  - Lymphoproliferative disorder [Unknown]
  - Lymphadenopathy [Unknown]
  - Splenomegaly [Unknown]
  - Inappropriate schedule of product administration [Unknown]
